FAERS Safety Report 6740138-7 (Version None)
Quarter: 2010Q2

REPORT INFORMATION
  Report Type: 
  Country: None (occurrence: None)
  Receive Date: 20100525
  Receipt Date: 20100517
  Transmission Date: 20101027
  Serious: Yes (Hospitalization)
  Sender: FDA-Public Use
  Company Number: A0723721A

PATIENT
  Age: 39 Year
  Sex: Female
  Weight: 167.3 kg

DRUGS (1)
  1. AVANDIA [Suspect]
     Dosage: 4MG SEE DOSAGE TEXT
     Route: 048
     Dates: start: 20000101, end: 20050110

REACTIONS (7)
  - ACUTE CORONARY SYNDROME [None]
  - CARDIAC FAILURE CONGESTIVE [None]
  - DEPRESSION [None]
  - DIABETES MELLITUS [None]
  - DIABETIC COMPLICATION [None]
  - MYOCARDIAL INFARCTION [None]
  - PALPITATIONS [None]
